FAERS Safety Report 4851037-X (Version None)
Quarter: 2005Q4

REPORT INFORMATION
  Report Type: 
  Country: None (occurrence: None)
  Receive Date: 20051130
  Receipt Date: 20050928
  Transmission Date: 20060501
  Serious: No
  Sender: FDA-Public Use
  Company Number: FABR-11262

PATIENT
  Age: 36 Year
  Sex: Male
  Weight: 74.6 kg

DRUGS (4)
  1. FABRAZYME [Suspect]
     Indication: FABRY'S DISEASE
     Dosage: 1 MG/KG Q2WKS IV
     Route: 042
     Dates: start: 20040527
  2. ENALAPRIL MALEATE [Concomitant]
  3. MOPRAL [Concomitant]
  4. SOLU-MEDROL [Concomitant]

REACTIONS (1)
  - CHILLS [None]
